FAERS Safety Report 19579972 (Version 2)
Quarter: 2021Q3

REPORT INFORMATION
  Report Type: Report from Study
  Country: JP (occurrence: JP)
  Receive Date: 20210719
  Receipt Date: 20210720
  Transmission Date: 20211014
  Serious: Yes (Life-Threatening, Other)
  Sender: FDA-Public Use
  Company Number: JP-TEVA-2021-JP-1926586

PATIENT
  Age: 75 Year
  Sex: Female
  Weight: 37 kg

DRUGS (10)
  1. HYALEIN [Concomitant]
     Active Substance: HYALURONATE SODIUM
  2. MOHRUS L [Concomitant]
     Active Substance: KETOPROFEN
  3. GASTER [Concomitant]
     Active Substance: FAMOTIDINE
  4. LEVODOPA [Concomitant]
     Active Substance: LEVODOPA
  5. BI SIFROL [Concomitant]
     Active Substance: PRAMIPEXOLE
  6. RASAGILINE MESYLATE TABLET [Suspect]
     Active Substance: RASAGILINE MESYLATE
     Dosage: 1 MILLIGRAM DAILY;
     Route: 048
     Dates: start: 20190604, end: 202102
  7. SYMMETREL [Concomitant]
     Active Substance: AMANTADINE HYDROCHLORIDE
  8. RASAGILINE MESYLATE TABLET [Suspect]
     Active Substance: RASAGILINE MESYLATE
     Indication: PARKINSON^S DISEASE
     Dosage: .5 MILLIGRAM DAILY;
     Route: 048
     Dates: start: 20190402, end: 20190603
  9. MOHRUS [Concomitant]
     Active Substance: KETOPROFEN
  10. TRERIEF [Concomitant]
     Active Substance: ZONISAMIDE

REACTIONS (7)
  - Rectal stenosis [Not Recovered/Not Resolved]
  - Altered state of consciousness [Not Recovered/Not Resolved]
  - Muscle abscess [Not Recovered/Not Resolved]
  - Intestinal obstruction [Not Recovered/Not Resolved]
  - Cerebral infarction [Not Recovered/Not Resolved]
  - Shock [Not Recovered/Not Resolved]
  - Colostomy [Not Recovered/Not Resolved]

NARRATIVE: CASE EVENT DATE: 20210224
